FAERS Safety Report 4811956-7 (Version None)
Quarter: 2005Q4

REPORT INFORMATION
  Report Type: 
  Country: None (occurrence: None)
  Receive Date: 20051028
  Receipt Date: 20041020
  Transmission Date: 20060501
  Serious: No
  Sender: FDA-Public Use
  Company Number: US-GLAXOSMITHKLINE-A0530629A

PATIENT
  Age: 8 Year
  Sex: Male
  Weight: 52.3 kg

DRUGS (4)
  1. ADVAIR DISKUS 100/50 [Suspect]
     Dosage: 2PUFF PER DAY
     Route: 055
     Dates: start: 20030101
  2. ALBUTEROL [Concomitant]
     Dosage: 1PUFF FOUR TIMES PER DAY
     Route: 055
  3. SINGULAIR [Concomitant]
     Dosage: 5MG PER DAY
     Route: 048
  4. FLONASE [Concomitant]
     Dosage: 2SPR PER DAY
     Route: 045

REACTIONS (5)
  - ANXIETY [None]
  - DEPRESSION [None]
  - EMOTIONAL DISORDER [None]
  - FEELING JITTERY [None]
  - NERVOUSNESS [None]
